FAERS Safety Report 14788512 (Version 1)
Quarter: 2018Q2

REPORT INFORMATION
  Report Type: Spontaneous
  Country: US (occurrence: US)
  Receive Date: 20180423
  Receipt Date: 20180423
  Transmission Date: 20180711
  Serious: Yes (Hospitalization)
  Sender: FDA-Public Use
  Company Number: US-ASTRAZENECA-2018SE51877

PATIENT
  Age: 41 Day
  Sex: Male

DRUGS (2)
  1. SYNAGIS [Suspect]
     Active Substance: PALIVIZUMAB
     Indication: CARDIAC DISORDER
     Route: 030
     Dates: start: 20180412
  2. SYNAGIS [Suspect]
     Active Substance: PALIVIZUMAB
     Indication: CARDIAC DISORDER
     Route: 030
     Dates: start: 20180118, end: 20180412

REACTIONS (3)
  - Off label use [Unknown]
  - International normalised ratio decreased [Recovered/Resolved]
  - Product use in unapproved indication [Unknown]

NARRATIVE: CASE EVENT DATE: 20180118
